FAERS Safety Report 6248605-X (Version None)
Quarter: 2009Q2

REPORT INFORMATION
  Report Type: 
  Country: None (occurrence: None)
  Receive Date: 20090629
  Receipt Date: 20090625
  Transmission Date: 20091009
  Serious: Yes (Hospitalization)
  Sender: FDA-Public Use
  Company Number: GB-ASTRAZENECA-2009GB01194

PATIENT
  Age: 62 Year
  Sex: Female
  Weight: 62 kg

DRUGS (11)
  1. QUETIAPINE [Suspect]
     Indication: PSYCHOTIC DISORDER
     Dosage: LOW DOSE
     Route: 048
     Dates: start: 20080901, end: 20090401
  2. QUETIAPINE [Suspect]
     Dosage: 125 MG MANE AND 175 MG NOCTE
     Route: 048
     Dates: start: 20090401, end: 20090501
  3. FUROSEMIDE INTENSOL [Concomitant]
  4. SOLUBLE ASPIRIN [Concomitant]
  5. SENNA [Concomitant]
  6. VIT B [Concomitant]
  7. LACTULOSE [Concomitant]
  8. NULYTELY [Concomitant]
     Dosage: SACHET TWICE A DAY
  9. DEPAKOTE [Concomitant]
  10. LATANOPROST [Concomitant]
     Dosage: 1 DROP DAILY
  11. DIAZEPAM [Concomitant]
     Dosage: 2 MG TWICE A DAY PLUS 5 MG NOCTE

REACTIONS (1)
  - HYPERSEXUALITY [None]
